FAERS Safety Report 9274873 (Version 2)
Quarter: 2013Q2

REPORT INFORMATION
  Report Type: Spontaneous
  Country: BE (occurrence: BE)
  Receive Date: 20130507
  Receipt Date: 20130610
  Transmission Date: 20140414
  Serious: Yes (Death, Life-Threatening)
  Sender: FDA-Public Use
  Company Number: BE-JNJFOC-20130502828

PATIENT
  Age: 87 Year
  Sex: Male
  Weight: 70 kg

DRUGS (5)
  1. XARELTO [Suspect]
     Indication: CEREBROVASCULAR ACCIDENT PROPHYLAXIS
     Route: 048
     Dates: start: 201302, end: 20130319
  2. XARELTO [Suspect]
     Indication: ATRIAL FIBRILLATION
     Route: 048
     Dates: start: 201302, end: 20130319
  3. HYDROCHLOROTHIAZIDE LISINOPRIL [Concomitant]
     Indication: ATRIAL FIBRILLATION
     Route: 048
  4. LANOXIN [Concomitant]
     Indication: ATRIAL FIBRILLATION
     Route: 048
  5. BISOPROLOL FUMARATE [Concomitant]
     Indication: HYPERTENSION
     Route: 048

REACTIONS (5)
  - Haemorrhage intracranial [Fatal]
  - Subdural haematoma [Fatal]
  - Traumatic intracranial haemorrhage [Fatal]
  - Coagulopathy [Unknown]
  - Head injury [Unknown]
